FAERS Safety Report 4467851-9 (Version None)
Quarter: 2004Q4

REPORT INFORMATION
  Report Type: 
  Country: None (occurrence: None)
  Receive Date: 20041004
  Receipt Date: 20040921
  Transmission Date: 20050328
  Serious: Yes (Hospitalization)
  Sender: FDA-Public Use
  Company Number: 2004058787

PATIENT
  Age: 23 Year
  Sex: Female

DRUGS (3)
  1. GEODON [Suspect]
     Indication: EMOTIONAL DISORDER
     Dosage: 40 MG (40 MG, 1 IN 1 D), ORAL
     Route: 048
     Dates: start: 20040818, end: 20040819
  2. CARBAMAZEPINE [Concomitant]
  3. LITHIUM CARBONATE [Concomitant]

REACTIONS (6)
  - ABNORMAL BEHAVIOUR [None]
  - CONVULSION [None]
  - CRYING [None]
  - MALAISE [None]
  - SELF INJURIOUS BEHAVIOUR [None]
  - VOMITING [None]
